FAERS Safety Report 6716029-4 (Version None)
Quarter: 2010Q2

REPORT INFORMATION
  Report Type: 
  Country: None (occurrence: None)
  Receive Date: 20100506
  Receipt Date: 20100506
  Transmission Date: 20101027
  Serious: No
  Sender: FDA-Public Use
  Company Number: None

PATIENT
  Age: 47 Year
  Sex: Male
  Weight: 70.3075 kg

DRUGS (2)
  1. VANCOMYCIN [Suspect]
     Indication: STAPHYLOCOCCAL INFECTION
     Dosage: 1 GRAM Q8H IV
     Route: 042
     Dates: start: 20100324, end: 20100327
  2. VANCOMYCIN [Suspect]
     Indication: STREPTOCOCCAL INFECTION
     Dosage: 1 GRAM Q8H IV
     Route: 042
     Dates: start: 20100324, end: 20100327

REACTIONS (4)
  - DEAFNESS [None]
  - DIZZINESS [None]
  - OTOTOXICITY [None]
  - TINNITUS [None]
